FAERS Safety Report 20377072 (Version 5)
Quarter: 2022Q1

REPORT INFORMATION
  Report Type: Report from Study
  Country: AT (occurrence: AT)
  Receive Date: 20220125
  Receipt Date: 20220312
  Transmission Date: 20220423
  Serious: Yes (Death, Life-Threatening, Hospitalization, Disabling)
  Sender: FDA-Public Use
  Company Number: AT-JCAR017-FOL-001-4501005-20220121-0004SG

PATIENT
  Age: 71 Year
  Sex: Male
  Weight: 88 kg

DRUGS (38)
  1. LISOCABTAGENE MARALEUCEL [Suspect]
     Active Substance: LISOCABTAGENE MARALEUCEL
     Indication: Marginal zone lymphoma
     Dosage: 100 X 10^6 CAR+ T CELLS X ONCE
     Route: 041
     Dates: start: 20211210, end: 20211210
  2. CYCLOPHOSPHAMIDE [Suspect]
     Active Substance: CYCLOPHOSPHAMIDE
     Indication: Marginal zone lymphoma
     Dosage: 300 MG X ONCE
     Route: 041
     Dates: start: 20211201, end: 20211201
  3. CYCLOPHOSPHAMIDE [Suspect]
     Active Substance: CYCLOPHOSPHAMIDE
     Dosage: 300 MG X ONCE
     Route: 041
     Dates: start: 20211202, end: 20211202
  4. CYCLOPHOSPHAMIDE [Suspect]
     Active Substance: CYCLOPHOSPHAMIDE
     Dosage: 300 MG X ONCE
     Route: 041
     Dates: start: 20211206, end: 20211206
  5. FLUDARABINE [Suspect]
     Active Substance: FLUDARABINE PHOSPHATE
     Indication: Marginal zone lymphoma
     Dosage: 30 MG X ONCE
     Route: 041
     Dates: start: 20211201, end: 20211201
  6. FLUDARABINE [Suspect]
     Active Substance: FLUDARABINE PHOSPHATE
     Dosage: 30 MG X ONCE
     Route: 041
     Dates: start: 20211202, end: 20211202
  7. FLUDARABINE [Suspect]
     Active Substance: FLUDARABINE PHOSPHATE
     Dosage: 30 MG X ONCE
     Route: 041
     Dates: start: 20211206, end: 20211206
  8. ALLOPURINOL [Concomitant]
     Active Substance: ALLOPURINOL
     Indication: Prophylaxis
     Dosage: 150 MG X 4 X 1 DAYS
     Route: 048
     Dates: start: 2007, end: 20211230
  9. ALLOPURINOL [Concomitant]
     Active Substance: ALLOPURINOL
     Dosage: 300 MG X 2 X 1 DAYS
     Route: 048
     Dates: start: 20211229, end: 20220105
  10. EMPAGLIFLOZIN [Concomitant]
     Active Substance: EMPAGLIFLOZIN
     Indication: Type 2 diabetes mellitus
     Dosage: 10 MG X 4 X 1 DAYS
     Route: 048
     Dates: start: 2012, end: 20220105
  11. INSULIN GLARGINE [Concomitant]
     Active Substance: INSULIN GLARGINE
     Indication: Type 2 diabetes mellitus
     Dosage: 16 IU X 4 X 1 DAYS
     Route: 003
     Dates: start: 2007
  12. CALCIUM GLUCONATE [Concomitant]
     Active Substance: CALCIUM GLUCONATE
     Indication: Prophylaxis
     Dosage: 2 AMPULE X ONCE
     Route: 048
     Dates: start: 20220103, end: 20220103
  13. DIPHENHYDRAMINE [Concomitant]
     Active Substance: DIPHENHYDRAMINE
     Indication: Premedication
     Dosage: 1 AMPULE X ONCE
     Route: 042
     Dates: start: 20220120, end: 20220120
  14. INSULIN ASPART [Concomitant]
     Active Substance: INSULIN ASPART
     Indication: Type 2 diabetes mellitus
     Dosage: 300 IU X OCCASIONAL
     Route: 058
     Dates: start: 20211207, end: 20220105
  15. INSULIN ASPART [Concomitant]
     Active Substance: INSULIN ASPART
     Dosage: 0.5 ML/H X INTERMITTENT
     Route: 042
     Dates: start: 20220105
  16. LACTULOSE [Concomitant]
     Active Substance: LACTULOSE
     Indication: Prophylaxis
     Dosage: 1 CUP X ONCE
     Route: 048
     Dates: start: 20220108, end: 20220108
  17. MICAFUNGIN [Concomitant]
     Active Substance: MICAFUNGIN
     Indication: Prophylaxis
     Dosage: 100 MG X 1 X 1 DAYS
     Route: 042
     Dates: start: 20220120, end: 20220124
  18. PANTOPRAZOLE SODIUM [Concomitant]
     Active Substance: PANTOPRAZOLE SODIUM
     Indication: Prophylaxis
     Dosage: 40 MG X 1 X 1 DAYS
     Route: 042
     Dates: start: 20220121
  19. PANTOPRAZOLE [Concomitant]
     Active Substance: PANTOPRAZOLE
     Indication: Prophylaxis
     Dosage: 40 MG X 4 X 1 DAYS
     Route: 048
     Dates: start: 20211216, end: 20220114
  20. PIPERACILLIN AND TAZOBACTAM [Concomitant]
     Active Substance: PIPERACILLIN SODIUM\TAZOBACTAM SODIUM
     Indication: Prophylaxis
     Dosage: 4.5 MG X 3 X 1 DAYS
     Route: 042
     Dates: start: 20220106, end: 20220114
  21. PIPERACILLIN AND TAZOBACTAM [Concomitant]
     Active Substance: PIPERACILLIN SODIUM\TAZOBACTAM SODIUM
     Indication: Adverse event
     Dosage: 4.5 G X CONTINUOUS
     Route: 042
     Dates: start: 20220120
  22. POSACONAZOLE [Concomitant]
     Active Substance: POSACONAZOLE
     Indication: Prophylaxis
     Dosage: 100 MG X 3 X 1 DAYS
     Route: 048
     Dates: start: 20211214, end: 20220104
  23. POSACONAZOLE [Concomitant]
     Active Substance: POSACONAZOLE
     Indication: Adverse event
     Dosage: 100 MG X 3 X 1 DAYS
     Route: 048
     Dates: start: 20211223, end: 20220113
  24. POTASSIUM BICARBONATE [Concomitant]
     Active Substance: POTASSIUM BICARBONATE
     Indication: Prophylaxis
     Dosage: 1 SACHET X ONCE
     Route: 048
     Dates: start: 20211226, end: 20211226
  25. POTASSIUM BICARBONATE [Concomitant]
     Active Substance: POTASSIUM BICARBONATE
     Dosage: 2 SACHET X 2 X 1 DAYS
     Route: 048
     Dates: start: 20211227, end: 20211230
  26. POTASSIUM BICARBONATE [Concomitant]
     Active Substance: POTASSIUM BICARBONATE
     Dosage: 1 SACHET X 4 X 1 DAYS
     Route: 048
     Dates: start: 20211231, end: 20220104
  27. PREGABALIN [Concomitant]
     Active Substance: PREGABALIN
     Indication: Peripheral sensory neuropathy
     Dosage: 25 MG X 2 X 1 DAYS
     Route: 048
     Dates: start: 20211211, end: 20220110
  28. PREGABALIN [Concomitant]
     Active Substance: PREGABALIN
     Dosage: 25 MG X 4 X 1 DAYS
     Route: 048
     Dates: start: 20220111, end: 20220114
  29. RINGERS SOLUTION [Concomitant]
     Active Substance: CALCIUM CHLORIDE\POTASSIUM CHLORIDE\SODIUM CHLORIDE
     Indication: Prophylaxis
     Dosage: 1 L X ONCE
     Route: 042
     Dates: start: 20211228, end: 20211230
  30. RINGERS SOLUTION [Concomitant]
     Active Substance: CALCIUM CHLORIDE\POTASSIUM CHLORIDE\SODIUM CHLORIDE
     Indication: Adverse event
     Dosage: 1000 ML X 2 X 1 DAYS
     Route: 042
     Dates: start: 20220105, end: 20220105
  31. RINGERS SOLUTION [Concomitant]
     Active Substance: CALCIUM CHLORIDE\POTASSIUM CHLORIDE\SODIUM CHLORIDE
     Dosage: 100 ML/H X CONTINUOUS
     Route: 042
     Dates: start: 20220106, end: 20220107
  32. RINGERS SOLUTION [Concomitant]
     Active Substance: CALCIUM CHLORIDE\POTASSIUM CHLORIDE\SODIUM CHLORIDE
     Dosage: 80 ML/H X CONTINUOUS
     Route: 042
     Dates: start: 20220108, end: 20220114
  33. RINGERS SOLUTION [Concomitant]
     Active Substance: CALCIUM CHLORIDE\POTASSIUM CHLORIDE\SODIUM CHLORIDE
     Dosage: 50 ML/H X CONTINUOUS
     Route: 042
     Dates: start: 20220120, end: 20220121
  34. ROSUVASTATIN [Concomitant]
     Active Substance: ROSUVASTATIN
     Indication: Prophylaxis
     Dosage: 10 MG X 4 X 1 DAYS
     Route: 048
     Dates: start: 20211223, end: 20220105
  35. METFORMIN\SITAGLIPTIN [Concomitant]
     Active Substance: METFORMIN\SITAGLIPTIN
     Indication: Type 2 diabetes mellitus
     Dosage: 50/1000 MG X 2 X 1 DAYS
     Route: 048
     Dates: start: 20211218, end: 20220105
  36. DRONABINOL [Concomitant]
     Active Substance: DRONABINOL
     Indication: Decreased appetite
     Dosage: 2 GTT X 3 X 1 DAYS
     Route: 048
     Dates: start: 20220102, end: 20220105
  37. TROSPIUM CHLORIDE [Concomitant]
     Active Substance: TROSPIUM CHLORIDE
     Indication: Prophylaxis
     Dosage: 15 MG X 4 X 1 DAYS
     Route: 048
     Dates: start: 20211220, end: 20220105
  38. VALACYCLOVIR HYDROCHLORIDE [Concomitant]
     Active Substance: VALACYCLOVIR HYDROCHLORIDE
     Indication: Prophylaxis
     Dosage: 500 MG X 4 X 1 DAYS
     Route: 048
     Dates: start: 20211222, end: 20220114

REACTIONS (1)
  - Neutropenic sepsis [Fatal]

NARRATIVE: CASE EVENT DATE: 20220120
